FAERS Safety Report 12188166 (Version 1)
Quarter: 2016Q1

REPORT INFORMATION
  Report Type: Spontaneous
  Country: US (occurrence: US)
  Receive Date: 20160317
  Receipt Date: 20160317
  Transmission Date: 20160526
  Serious: No
  Sender: FDA-Public Use
  Company Number: US-WARNER CHILCOTT, LLC-1049259

PATIENT
  Age: 50 Year
  Sex: Female

DRUGS (6)
  1. ESTRADIOL. [Concomitant]
     Active Substance: ESTRADIOL
     Dates: start: 2011
  2. ESTRACE [Suspect]
     Active Substance: ESTRADIOL
     Route: 061
     Dates: start: 20150528
  3. VITAMINS [Concomitant]
     Active Substance: VITAMINS
  4. ESTRACE [Suspect]
     Active Substance: ESTRADIOL
     Indication: URETHRAL PROLAPSE
     Route: 067
     Dates: start: 20150528
  5. PROVERA [Concomitant]
     Active Substance: MEDROXYPROGESTERONE ACETATE
     Dates: start: 2013
  6. MOBIC [Concomitant]
     Active Substance: MELOXICAM

REACTIONS (6)
  - Chapped lips [Not Recovered/Not Resolved]
  - Lip swelling [Recovered/Resolved]
  - Lip disorder [Recovered/Resolved]
  - Product use issue [Unknown]
  - Wrong technique in product usage process [Unknown]
  - Drug prescribing error [Unknown]

NARRATIVE: CASE EVENT DATE: 20150530
